FAERS Safety Report 7306056-0 (Version None)
Quarter: 2011Q1

REPORT INFORMATION
  Report Type: 
  Country: None (occurrence: None)
  Receive Date: 20110222
  Receipt Date: 20110211
  Transmission Date: 20110831
  Serious: Yes (Death, Hospitalization)
  Sender: FDA-Public Use
  Company Number: DE-BAXTER-2011BH002472

PATIENT
  Age: 53 Year
  Sex: Male

DRUGS (7)
  1. EXTRANEAL [Suspect]
     Indication: PERITONEAL DIALYSIS
     Route: 033
     Dates: end: 20110201
  2. DIANEAL [Suspect]
     Route: 033
     Dates: end: 20110201
  3. DIANEAL PD-1 [Suspect]
     Route: 033
     Dates: end: 20110201
  4. DIANEAL PD-1 [Suspect]
     Route: 033
     Dates: end: 20110201
  5. DIANEAL [Suspect]
     Indication: PERITONEAL DIALYSIS
     Route: 033
     Dates: end: 20110201
  6. EXTRANEAL [Suspect]
     Route: 033
     Dates: end: 20110201
  7. DIANEAL PD-1 [Suspect]
     Indication: PERITONEAL DIALYSIS
     Route: 033
     Dates: end: 20110201

REACTIONS (5)
  - MULTI-ORGAN FAILURE [None]
  - VOMITING [None]
  - DIARRHOEA [None]
  - PERITONEAL DIALYSIS COMPLICATION [None]
  - PERITONITIS BACTERIAL [None]
